FAERS Safety Report 21253418 (Version 2)
Quarter: 2022Q4

REPORT INFORMATION
  Report Type: Spontaneous
  Country: US (occurrence: US)
  Receive Date: 20220825
  Receipt Date: 20221024
  Transmission Date: 20230112
  Serious: No
  Sender: FDA-Public Use
  Company Number: US-PFIZER INC-PV202200049203

PATIENT
  Age: 55 Year
  Sex: Female

DRUGS (1)
  1. XELJANZ XR [Suspect]
     Active Substance: TOFACITINIB CITRATE
     Indication: Rheumatoid arthritis
     Dosage: 11 MG, DAILY
     Route: 048
     Dates: start: 20220717

REACTIONS (5)
  - Arthralgia [Recovering/Resolving]
  - Inflammation [Recovering/Resolving]
  - Malaise [Recovering/Resolving]
  - Depression [Recovering/Resolving]
  - Discouragement [Recovering/Resolving]

NARRATIVE: CASE EVENT DATE: 20220101
